FAERS Safety Report 11161158 (Version 1)
Quarter: 2015Q2

REPORT INFORMATION
  Report Type: Spontaneous
  Country: US (occurrence: US)
  Receive Date: 20150604
  Receipt Date: 20150604
  Transmission Date: 20150821
  Serious: No
  Sender: FDA-Public Use
  Company Number: US-SA-2014SA074423

PATIENT

DRUGS (3)
  1. VICTOZA [Suspect]
     Active Substance: LIRAGLUTIDE
     Indication: TYPE 2 DIABETES MELLITUS
     Route: 065
  2. PLEXUS [Concomitant]
  3. LANTUS [Suspect]
     Active Substance: INSULIN GLARGINE
     Indication: TYPE 2 DIABETES MELLITUS
     Route: 065

REACTIONS (10)
  - Blood glucose increased [Recovering/Resolving]
  - Insomnia [Recovered/Resolved]
  - Asthenia [Recovering/Resolving]
  - Weight increased [Recovering/Resolving]
  - Depression [Unknown]
  - Feeling abnormal [Recovering/Resolving]
  - Anxiety [Recovering/Resolving]
  - Malaise [Recovering/Resolving]
  - Psoriasis [Recovering/Resolving]
  - Panic attack [Unknown]
